FAERS Safety Report 10254845 (Version 1)
Quarter: 2014Q2

REPORT INFORMATION
  Report Type: Report from Study
  Country: US (occurrence: US)
  Receive Date: 20140624
  Receipt Date: 20140624
  Transmission Date: 20141212
  Serious: Yes (Other)
  Sender: FDA-Public Use
  Company Number: US-JNJFOC-20140612748

PATIENT
  Sex: Male
  Weight: 86.18 kg

DRUGS (4)
  1. REMICADE [Suspect]
     Indication: COLITIS ULCERATIVE
     Route: 042
     Dates: start: 2011
  2. AZATHIOPRINE [Concomitant]
     Indication: COLITIS ULCERATIVE
     Route: 048
  3. VITAMIN B12 [Concomitant]
     Route: 058
  4. TRAMADOL [Concomitant]
     Indication: PAIN
     Route: 048

REACTIONS (1)
  - Herpes zoster [Recovered/Resolved]
